FAERS Safety Report 9208209 (Version 2)
Quarter: 2013Q2

REPORT INFORMATION
  Report Type: Spontaneous
  Country: US (occurrence: US)
  Receive Date: 20130403
  Receipt Date: 20130411
  Transmission Date: 20140414
  Serious: Yes (Hospitalization)
  Sender: FDA-Public Use
  Company Number: US-BAXTER-2013BAX011674

PATIENT
  Age: 56 Year
  Sex: Male

DRUGS (2)
  1. DIANEAL LOW CALCIUM [Suspect]
     Indication: PERITONEAL DIALYSIS
     Dosage: LAST FILL OF 2L
     Route: 033
     Dates: start: 20120425
  2. DIANEAL LOW CALCIUM [Suspect]
     Indication: PERITONEAL DIALYSIS
     Dosage: LAST FILL OF 2L
     Route: 033
     Dates: start: 20120425

REACTIONS (2)
  - Blood parathyroid hormone increased [Recovering/Resolving]
  - Blood calcium decreased [Recovered/Resolved]
